FAERS Safety Report 5098661-X (Version None)
Quarter: 2006Q3

REPORT INFORMATION
  Report Type: 
  Country: None (occurrence: None)
  Receive Date: 20060907
  Receipt Date: 20060829
  Transmission Date: 20061208
  Serious: Yes (Hospitalization)
  Sender: FDA-Public Use
  Company Number: JRFBEL1999000132

PATIENT
  Sex: Female

DRUGS (14)
  1. RISPERDAL [Suspect]
     Route: 048
     Dates: start: 19981201, end: 19990315
  2. RISPERDAL [Suspect]
     Route: 048
     Dates: start: 19981201, end: 19990315
  3. RISPERDAL [Suspect]
     Route: 048
     Dates: start: 19981201, end: 19990315
  4. RISPERDAL [Suspect]
     Indication: ABNORMAL BEHAVIOUR
     Route: 048
     Dates: start: 19981201, end: 19990315
  5. TEGRETOL [Suspect]
     Route: 048
     Dates: start: 19990215
  6. TEGRETOL [Suspect]
     Route: 048
     Dates: start: 19990215
  7. TEGRETOL [Suspect]
     Route: 048
     Dates: start: 19990215
  8. TEGRETOL [Suspect]
     Route: 048
     Dates: start: 19990215
  9. TEGRETOL [Suspect]
     Indication: DRUG USE FOR UNKNOWN INDICATION
     Route: 048
     Dates: start: 19990215
  10. AKINETON [Concomitant]
     Route: 048
     Dates: start: 19981106
  11. TRANXENE [Concomitant]
     Route: 048
     Dates: start: 19981026
  12. HOMEOP.PREP.UNSP [Concomitant]
  13. NOZINAN [Concomitant]
     Route: 048
     Dates: start: 19990218
  14. MICROGYNON [Concomitant]
     Route: 048

REACTIONS (1)
  - STEVENS-JOHNSON SYNDROME [None]
